FAERS Safety Report 8501872-1 (Version None)
Quarter: 2012Q3

REPORT INFORMATION
  Report Type: 
  Country: None (occurrence: None)
  Receive Date: 20120711
  Receipt Date: 20120706
  Transmission Date: 20120928
  Serious: Yes (Hospitalization, Other)
  Sender: FDA-Public Use
  Company Number: PHFR2012IE003679

PATIENT
  Sex: Male

DRUGS (3)
  1. CLOZARIL [Suspect]
     Indication: SCHIZOPHRENIA
     Dosage: 500 MG, UNK
     Route: 048
     Dates: start: 20030714
  2. VALPROATE SODIUM [Concomitant]
     Indication: AFFECTIVE DISORDER
     Dosage: 1600
     Route: 048
  3. KWELLS [Concomitant]
     Indication: DROOLING
     Dosage: UNK UKN, UNK
     Route: 048

REACTIONS (6)
  - PLEURAL EFFUSION [None]
  - NEUTROPHIL COUNT INCREASED [None]
  - WHITE BLOOD CELL COUNT INCREASED [None]
  - NEOPLASM MALIGNANT [None]
  - TUBERCULOSIS [None]
  - RESPIRATORY DISTRESS [None]
